FAERS Safety Report 23376658 (Version 2)
Quarter: 2024Q2

REPORT INFORMATION
  Report Type: Spontaneous
  Country: CA (occurrence: CA)
  Receive Date: 20240108
  Receipt Date: 20240520
  Transmission Date: 20240716
  Serious: Yes (Other)
  Sender: FDA-Public Use
  Company Number: CA-ORGANON-O2401CAN000303

PATIENT
  Sex: Female

DRUGS (1)
  1. NEXPLANON [Suspect]
     Active Substance: ETONOGESTREL
     Indication: Product used for unknown indication
     Dosage: 1 DOSAGE FORM
     Route: 059

REACTIONS (3)
  - Device expulsion [Not Recovered/Not Resolved]
  - Implant site pruritus [Unknown]
  - Wrong technique in device usage process [Unknown]
